FAERS Safety Report 22663107 (Version 2)
Quarter: 2023Q4

REPORT INFORMATION
  Report Type: Spontaneous
  Country: RU (occurrence: RU)
  Receive Date: 20230703
  Receipt Date: 20231019
  Transmission Date: 20240110
  Serious: Yes (Death, Other)
  Sender: FDA-Public Use
  Company Number: RU-JNJFOC-20230672884

PATIENT
  Age: 24 Year
  Sex: Female

DRUGS (1)
  1. STELARA [Suspect]
     Active Substance: USTEKINUMAB
     Indication: Crohn^s disease
     Route: 058

REACTIONS (2)
  - Death [Fatal]
  - Colectomy total [Unknown]

NARRATIVE: CASE EVENT DATE: 20230501
